FAERS Safety Report 16662333 (Version 2)
Quarter: 2020Q1

REPORT INFORMATION
  Report Type: Report from Study
  Country: US (occurrence: US)
  Receive Date: 20190802
  Receipt Date: 20200129
  Transmission Date: 20200409
  Serious: No
  Sender: FDA-Public Use
  Company Number: US-EXELIXIS-CABO-18017991

PATIENT
  Age: 66 Year
  Sex: Male

DRUGS (15)
  1. LOSARTAN POTASSSIUM [Concomitant]
  2. VIBERZI [Concomitant]
     Active Substance: ELUXADOLINE
     Dosage: UNK
  3. ALPRAZOLAM. [Concomitant]
     Active Substance: ALPRAZOLAM
  4. ERGOCALCIFEROL. [Concomitant]
     Active Substance: ERGOCALCIFEROL
  5. CABOMETYX [Suspect]
     Active Substance: CABOZANTINIB S-MALATE
     Dosage: 60 MG, QD
     Route: 048
     Dates: start: 201901
  6. PANTOPRAZOLE SODIUM. [Concomitant]
     Active Substance: PANTOPRAZOLE SODIUM
     Dosage: UNK
  7. CABOMETYX [Suspect]
     Active Substance: CABOZANTINIB S-MALATE
     Dosage: 40 MG, QD
     Route: 048
  8. MAGNESIUM [Concomitant]
     Active Substance: MAGNESIUM
  9. CABOMETYX [Suspect]
     Active Substance: CABOZANTINIB S-MALATE
     Indication: RENAL CANCER
     Dosage: 40 MG, QD
     Route: 048
     Dates: start: 20181205
  10. CABOMETYX [Suspect]
     Active Substance: CABOZANTINIB S-MALATE
     Dosage: UNK (40 MG X 2 = 80 MG, ACCIDENTALLY TOOK DOUBLE DOSE OF 40 MG)
     Route: 048
     Dates: start: 20190517, end: 20190517
  11. ROSUVASTATIN CALCIUM. [Concomitant]
     Active Substance: ROSUVASTATIN CALCIUM
     Dosage: UNK
  12. DEXILANT [Concomitant]
     Active Substance: DEXLANSOPRAZOLE
  13. COLACE [Concomitant]
     Active Substance: DOCUSATE SODIUM
  14. CABOMETYX [Suspect]
     Active Substance: CABOZANTINIB S-MALATE
     Dosage: 40 MG, QD
     Route: 048
  15. METOPROLOL SUCCINATE. [Concomitant]
     Active Substance: METOPROLOL SUCCINATE

REACTIONS (6)
  - Oral pain [Unknown]
  - Skin ulcer [Unknown]
  - Accidental overdose [Unknown]
  - Blood pressure abnormal [Unknown]
  - Rash [Unknown]
  - Diarrhoea [Not Recovered/Not Resolved]

NARRATIVE: CASE EVENT DATE: 201812
